FAERS Safety Report 6942978-8 (Version None)
Quarter: 2010Q3

REPORT INFORMATION
  Report Type: 
  Country: None (occurrence: None)
  Receive Date: 20100823
  Receipt Date: 20100812
  Transmission Date: 20110219
  Serious: Yes (Death, Hospitalization)
  Sender: FDA-Public Use
  Company Number: 104504

PATIENT
  Age: 35 Year
  Sex: Female
  Weight: 42 kg

DRUGS (1)
  1. ATRACURIUM BESYLATE [Suspect]
     Indication: MUSCLE RELAXANT THERAPY
     Dosage: 25MG IV
     Route: 042

REACTIONS (2)
  - CARDIAC ARREST [None]
  - DRUG INEFFECTIVE [None]
